FAERS Safety Report 9499629 (Version 1)
Quarter: 2013Q3

REPORT INFORMATION
  Report Type: Spontaneous
  Country: ZA (occurrence: None)
  Receive Date: 20130903
  Receipt Date: 20130903
  Transmission Date: 20140515
  Serious: Yes (Other)
  Sender: FDA-Public Use
  Company Number: 2013ZA002363

PATIENT
  Sex: Male

DRUGS (1)
  1. ICLUSIG [Suspect]
     Indication: CHRONIC MYELOID LEUKAEMIA
     Dosage: UNK, ORAL
     Route: 048

REACTIONS (1)
  - Adverse event [None]
